FAERS Safety Report 18962951 (Version 1)
Quarter: 2021Q1

REPORT INFORMATION
  Report Type: Other
  Country: US (occurrence: US)
  Receive Date: 20210303
  Receipt Date: 20210303
  Transmission Date: 20210420
  Serious: Yes (Other)
  Sender: FDA-Public Use
  Company Number: US-ROCHE-2775523

PATIENT
  Sex: Female

DRUGS (6)
  1. DALFAMPRIDINE. [Concomitant]
     Active Substance: DALFAMPRIDINE
  2. AMPYRA [Concomitant]
     Active Substance: DALFAMPRIDINE
  3. OCREVUS [Suspect]
     Active Substance: OCRELIZUMAB
     Indication: RELAPSING MULTIPLE SCLEROSIS
     Route: 065
  4. OCREVUS [Suspect]
     Active Substance: OCRELIZUMAB
     Indication: PRIMARY PROGRESSIVE MULTIPLE SCLEROSIS
  5. BACLOFEN. [Concomitant]
     Active Substance: BACLOFEN
  6. FORTEO [Concomitant]
     Active Substance: TERIPARATIDE

REACTIONS (1)
  - Urinary tract infection [Unknown]
